FAERS Safety Report 20152720 (Version 1)
Quarter: 2021Q4

REPORT INFORMATION
  Report Type: Spontaneous
  Country: US (occurrence: US)
  Receive Date: 20211206
  Receipt Date: 20211206
  Transmission Date: 20220303
  Serious: No
  Sender: FDA-Public Use
  Company Number: US-MYLANLABS-2021M1084151

PATIENT

DRUGS (1)
  1. GLATIRAMER ACETATE [Suspect]
     Active Substance: GLATIRAMER ACETATE
     Indication: Product used for unknown indication
     Dosage: 40 MILLIGRAM, 3XW
     Dates: start: 20210702, end: 20210907

REACTIONS (4)
  - Dizziness [Unknown]
  - Fall [Recovered/Resolved]
  - Injury [Recovered/Resolved]
  - Product substitution issue [Unknown]
